FAERS Safety Report 4526841-8 (Version None)
Quarter: 2004Q4

REPORT INFORMATION
  Report Type: 
  Country: None (occurrence: None)
  Receive Date: 20041213
  Receipt Date: 20041126
  Transmission Date: 20050328
  Serious: Yes (Death)
  Sender: FDA-Public Use
  Company Number: 2004BL008619

PATIENT
  Age: 77 Year
  Sex: Male

DRUGS (5)
  1. MINIMS PREDNISOLONE SODIUM PHOSPHATE (PREDNISOLONE SODIUM PHOSPHATE) [Suspect]
  2. WARFARIN SODIUM [Suspect]
     Dates: start: 19980101
  3. LOSARTAN [Concomitant]
  4. FLOMAX [Concomitant]
  5. OMEPRAZOLE [Concomitant]

REACTIONS (1)
  - CEREBRAL HAEMORRHAGE [None]
